FAERS Safety Report 7699094-X (Version None)
Quarter: 2011Q3

REPORT INFORMATION
  Report Type: 
  Country: None (occurrence: None)
  Receive Date: 20110819
  Receipt Date: 20110812
  Transmission Date: 20111222
  Serious: No
  Sender: FDA-Public Use
  Company Number: US-B.I. PHARMACEUTICALS,INC./RIDGEFIELD-2011-BP-20242BP

PATIENT
  Sex: Female

DRUGS (1)
  1. MIRAPEX [Suspect]
     Indication: RESTLESS LEGS SYNDROME
     Dates: start: 19970101

REACTIONS (12)
  - PATHOLOGICAL GAMBLING [None]
  - FATIGUE [None]
  - ANKLE FRACTURE [None]
  - EMOTIONAL DISTRESS [None]
  - STRESS [None]
  - DEPRESSION [None]
  - NAUSEA [None]
  - ABDOMINAL PAIN UPPER [None]
  - CEREBRAL HAEMORRHAGE [None]
  - BLOOD PRESSURE DECREASED [None]
  - IMPULSE-CONTROL DISORDER [None]
  - FALL [None]
